FAERS Safety Report 4549985-3 (Version None)
Quarter: 2005Q1

REPORT INFORMATION
  Report Type: 
  Country: None (occurrence: None)
  Receive Date: 20050112
  Receipt Date: 20041231
  Transmission Date: 20050727
  Serious: Yes (Hospitalization)
  Sender: FDA-Public Use
  Company Number: FR-BRISTOL-MYERS SQUIBB COMPANY-12813119

PATIENT
  Age: 71 Year
  Sex: Male

DRUGS (6)
  1. GLUCOPHAGE [Suspect]
     Route: 048
  2. THALIDOMIDE [Suspect]
     Route: 048
     Dates: start: 20040729, end: 20041009
  3. DAONIL [Suspect]
     Route: 048
  4. CORDARONE [Suspect]
     Route: 048
  5. DEROXAT [Suspect]
     Route: 048
  6. GLUCOR [Suspect]

REACTIONS (2)
  - NEUTROPENIA [None]
  - PYREXIA [None]
